FAERS Safety Report 8974080 (Version 1)
Quarter: 2012Q4

REPORT INFORMATION
  Report Type: Spontaneous
  Country: US (occurrence: None)
  Receive Date: 20121217
  Receipt Date: 20121217
  Transmission Date: 20130627
  Serious: Yes (Other)
  Sender: FDA-Public Use
  Company Number: None

PATIENT
  Sex: Male

DRUGS (1)
  1. EYLEA 2 MG -0.05ML- REGENERON [Suspect]
     Indication: WET MACULAR DEGENERATION
     Dosage: 2 mg every 6-8 weeks Ophthalmic
     Route: 047
     Dates: start: 20120625, end: 20120802

REACTIONS (1)
  - Uveitis [None]
